FAERS Safety Report 6862118-3 (Version None)
Quarter: 2010Q3

REPORT INFORMATION
  Report Type: 
  Country: None (occurrence: None)
  Receive Date: 20100721
  Receipt Date: 20100707
  Transmission Date: 20110219
  Serious: Yes (Other)
  Sender: FDA-Public Use
  Company Number: PHHY2010US45161

PATIENT
  Age: 63 Year
  Sex: Female

DRUGS (6)
  1. GLEEVEC [Suspect]
     Indication: GASTROINTESTINAL CARCINOMA
     Dosage: 400 MG DAILY
     Route: 048
     Dates: start: 20090919
  2. GLEEVEC [Suspect]
     Indication: MALIGNANT PERITONEAL NEOPLASM
  3. ONDANSETRON [Concomitant]
  4. PROCHLORPERAZINE [Concomitant]
  5. ASPIRIN [Concomitant]
  6. VITAMIN D [Concomitant]

REACTIONS (1)
  - BENIGN GASTROINTESTINAL NEOPLASM [None]
